FAERS Safety Report 7793151-5 (Version None)
Quarter: 2011Q4

REPORT INFORMATION
  Report Type: 
  Country: None (occurrence: None)
  Receive Date: 20111003
  Receipt Date: 20110919
  Transmission Date: 20120403
  Serious: Yes (Other)
  Sender: FDA-Public Use
  Company Number: US-JNJFOC-20110909620

PATIENT
  Sex: Female
  Weight: 95.26 kg

DRUGS (5)
  1. BENADRYL [Suspect]
     Indication: STRESS
     Dosage: 1 TABLET
     Route: 048
  2. CLARITIN [Concomitant]
     Indication: MULTIPLE ALLERGIES
     Dosage: FEW TIMES
     Route: 065
     Dates: start: 20110101
  3. PEPCID [Concomitant]
     Indication: ABDOMINAL PAIN UPPER
     Route: 065
  4. CORTISONE ACETATE [Concomitant]
     Indication: URTICARIA
     Route: 065
  5. BENADRYL [Suspect]
     Indication: MULTIPLE ALLERGIES
     Dosage: 1 TABLET
     Route: 048

REACTIONS (2)
  - ANGLE CLOSURE GLAUCOMA [None]
  - OFF LABEL USE [None]
